FAERS Safety Report 21243056 (Version 3)
Quarter: 2022Q3

REPORT INFORMATION
  Report Type: Spontaneous
  Country: JP (occurrence: JP)
  Receive Date: 20220823
  Receipt Date: 20220905
  Transmission Date: 20221026
  Serious: Yes (Hospitalization, Other)
  Sender: FDA-Public Use
  Company Number: JP-GSKNCCC-Case-01556705_AE-61385

PATIENT

DRUGS (23)
  1. ATOVAQUONE [Suspect]
     Active Substance: ATOVAQUONE
     Indication: Antifungal prophylaxis
     Dosage: 10 ML, QD BEFORE BREAKFAST
     Dates: start: 20220408, end: 202208
  2. PREDONINE [Suspect]
     Active Substance: PREDNISOLONE
     Indication: Rheumatic disorder
     Dosage: 50 MG, 1D
     Dates: start: 20220415, end: 20220425
  3. PREDONINE [Suspect]
     Active Substance: PREDNISOLONE
     Dosage: 40 MG, 1D
     Dates: start: 20220426, end: 20220509
  4. PREDONINE [Suspect]
     Active Substance: PREDNISOLONE
     Dosage: 30 MG, 1D
     Dates: start: 20220510, end: 20220523
  5. PREDONINE [Suspect]
     Active Substance: PREDNISOLONE
     Dosage: 25 MG, 1D
     Dates: start: 20220524, end: 20220808
  6. PREDONINE [Suspect]
     Active Substance: PREDNISOLONE
     Dosage: 10 MG, 1D
     Dates: start: 20220809
  7. PREDONINE [Suspect]
     Active Substance: PREDNISOLONE
     Dosage: 9 MG, 1D (5 MG IN THE MORNING, 4 MG AROUND NOON)
  8. DEXAMETHASONE [Suspect]
     Active Substance: DEXAMETHASONE
     Dosage: 6.6 MG
     Dates: start: 20220402
  9. RITUXIMAB [Suspect]
     Active Substance: RITUXIMAB
     Dosage: 625 MG (375MG/M2)
     Dates: start: 20220408
  10. RITUXIMAB [Suspect]
     Active Substance: RITUXIMAB
     Dosage: 625 MG (375MG/M2)
     Dates: start: 20220415
  11. RITUXIMAB [Suspect]
     Active Substance: RITUXIMAB
     Dosage: 625 MG (375MG/M2)
     Dates: start: 20220422
  12. TRAZENTA TABLETS [Concomitant]
     Indication: Prophylaxis
     Dosage: 1 DF, QD (AFTER BREAKFAST)
  13. ENALAPRIL MALEATE [Concomitant]
     Active Substance: ENALAPRIL MALEATE
     Dosage: 2.5 MG, QD AFTER BREAKFAST
  14. ROSUVASTATIN CALCIUM [Concomitant]
     Active Substance: ROSUVASTATIN CALCIUM
     Indication: Prophylaxis
     Dosage: 2.5 MG, QD
  15. ROZEREM TABLETS [Concomitant]
     Indication: Prophylaxis
     Dosage: 8 MG, QD BEFORE GOING TO SLEEP
  16. BELSOMRA [Concomitant]
     Active Substance: SUVOREXANT
     Indication: Prophylaxis
     Dosage: 15 MG, QD BEFORE GOING TO SLEEP
  17. LANSOPRAZOLE [Concomitant]
     Active Substance: LANSOPRAZOLE
     Indication: Prophylaxis
     Dosage: 15 MG, QD BEFORE GOING TO SLEEP
  18. MIYA-BM FINE GRANULES [Concomitant]
     Dosage: 3 DF, TID AFTER EVERY MEAL
  19. URSODIOL [Concomitant]
     Active Substance: URSODIOL
     Dosage: 100 MG, TID AFTER EVERY MEAL
  20. SPIRONOLACTONE [Concomitant]
     Active Substance: SPIRONOLACTONE
     Dosage: 1 DF, TID AFTER EVERY MEAL
  21. CALONAL [Concomitant]
     Active Substance: ACETAMINOPHEN
     Indication: Pyrexia
     Dosage: UNK, PRN
  22. ALFACALCIDOL [Concomitant]
     Active Substance: ALFACALCIDOL
     Dosage: 0.5 UG, QD AFTER BREAKFAST
  23. DAIPHEN TABLET [Concomitant]
     Dosage: 0.5 DF, QD AFTER BREAKFAST

REACTIONS (19)
  - Cytomegalovirus infection [Recovered/Resolved]
  - Pneumonia cytomegaloviral [Recovered/Resolved]
  - Pneumonia staphylococcal [Recovered/Resolved]
  - Staphylococcal infection [Recovered/Resolved]
  - Nephropathy [Unknown]
  - Steroid diabetes [Unknown]
  - Bacteraemia [Unknown]
  - Pleural effusion [Recovering/Resolving]
  - Pleural adhesion [Unknown]
  - Pneumothorax [Unknown]
  - Productive cough [Unknown]
  - Cerebral infarction [Unknown]
  - Glomerulonephritis acute [Unknown]
  - Interstitial lung disease [Unknown]
  - Infection [Unknown]
  - Disseminated intravascular coagulation [Unknown]
  - Loss of personal independence in daily activities [Unknown]
  - Speech disorder [Unknown]
  - Product use issue [Unknown]

NARRATIVE: CASE EVENT DATE: 20220408
